FAERS Safety Report 11391765 (Version 1)
Quarter: 2015Q3

REPORT INFORMATION
  Report Type: Spontaneous
  Country: US (occurrence: US)
  Receive Date: 20150818
  Receipt Date: 20150818
  Transmission Date: 20151125
  Serious: No
  Sender: FDA-Public Use
  Company Number: US-PFIZER INC-2015272072

PATIENT
  Age: 52 Year
  Sex: Female

DRUGS (1)
  1. CORTISONE ACETATE. [Suspect]
     Active Substance: CORTISONE ACETATE

REACTIONS (1)
  - Drug hypersensitivity [Not Recovered/Not Resolved]
